FAERS Safety Report 6181466-6 (Version None)
Quarter: 2009Q2

REPORT INFORMATION
  Report Type: 
  Country: None (occurrence: None)
  Receive Date: 20090505
  Receipt Date: 20090505
  Transmission Date: 20091009
  Serious: Yes (Hospitalization)
  Sender: FDA-Public Use
  Company Number: None

PATIENT
  Age: 70 Year
  Sex: Male
  Weight: 77.1115 kg

DRUGS (5)
  1. CLOFARABINE [Suspect]
     Indication: LYMPHOMA
     Dosage: 4MG/M2
     Dates: start: 20090427, end: 20090430
  2. ACYCLOVIR [Concomitant]
  3. FLUCONAZOLE [Concomitant]
  4. FUROSEMIDE [Concomitant]
  5. INSULIN GARGINE [Concomitant]

REACTIONS (2)
  - BACTERIA BLOOD IDENTIFIED [None]
  - CHILLS [None]
